FAERS Safety Report 14848074 (Version 1)
Quarter: 2018Q2

REPORT INFORMATION
  Report Type: Spontaneous
  Country: US (occurrence: US)
  Receive Date: 20180504
  Receipt Date: 20180504
  Transmission Date: 20180711
  Serious: Yes (Hospitalization, Other)
  Sender: FDA-Public Use
  Company Number: US-ASTRAZENECA-2018SE57350

PATIENT
  Sex: Female

DRUGS (1)
  1. OMEPRAZOLE. [Suspect]
     Active Substance: OMEPRAZOLE
     Route: 048

REACTIONS (7)
  - Nightmare [Unknown]
  - Abdominal pain [Unknown]
  - Pyrexia [Unknown]
  - Arthropod bite [Unknown]
  - Nausea [Unknown]
  - Anaphylactic shock [Unknown]
  - Procedural pain [Unknown]
